FAERS Safety Report 18190654 (Version 2)
Quarter: 2021Q3

REPORT INFORMATION
  Report Type: Spontaneous
  Country: US (occurrence: US)
  Receive Date: 20200825
  Receipt Date: 20210920
  Transmission Date: 20211014
  Serious: No
  Sender: FDA-Public Use
  Company Number: US-CELLTRION INC.-2019US027500

PATIENT

DRUGS (4)
  1. PREDNISONE. [Concomitant]
     Active Substance: PREDNISONE
     Dosage: 40 MG, TAKES ON THE TWO DAYS PRIOR TO TREATMENT AND THE TWO DAYS FOLLOWING TREATMENT
     Dates: start: 20191029
  2. INFLECTRA [Suspect]
     Active Substance: INFLIXIMAB-DYYB
     Indication: COLITIS ULCERATIVE
     Dosage: 470 MG, CYCLIC (EVERY 8 WEEKS)
     Route: 042
     Dates: start: 20181005
  3. INFLECTRA [Suspect]
     Active Substance: INFLIXIMAB-DYYB
     Indication: COLITIS
     Dosage: 5 MG/KG, CYCLIC (EVERY 2 MONTHS)
     Route: 042
     Dates: start: 20191018
  4. INFLECTRA [Suspect]
     Active Substance: INFLIXIMAB-DYYB
     Indication: ANAEMIA
     Dosage: 5 MG/KG, CYCLIC (EVERY 2 MONTHS)
     Route: 042
     Dates: start: 20181005

REACTIONS (3)
  - Night sweats [Recovered/Resolved]
  - Chills [Recovered/Resolved]
  - Off label use [Unknown]

NARRATIVE: CASE EVENT DATE: 20191025
